FAERS Safety Report 23218484 (Version 1)
Quarter: 2023Q4

REPORT INFORMATION
  Report Type: Report from Study
  Country: IL (occurrence: IL)
  Receive Date: 20231122
  Receipt Date: 20231122
  Transmission Date: 20240110
  Serious: Yes (Hospitalization, Other)
  Sender: FDA-Public Use
  Company Number: IL-GILEAD-2023-0645020

PATIENT
  Age: 42 Year
  Sex: Female

DRUGS (1)
  1. SACITUZUMAB GOVITECAN-HZIY [Suspect]
     Active Substance: SACITUZUMAB GOVITECAN-HZIY
     Indication: Triple negative breast cancer
     Dosage: 900 MG
     Route: 042
     Dates: start: 20231008, end: 20231026

REACTIONS (6)
  - Pneumonitis [Unknown]
  - Laryngopharyngitis [Unknown]
  - Respiratory tract infection [Unknown]
  - Cough [Unknown]
  - Dyspnoea [Unknown]
  - Toxicity to various agents [Unknown]
